FAERS Safety Report 10681766 (Version 1)
Quarter: 2014Q4

REPORT INFORMATION
  Report Type: Spontaneous
  Country: US (occurrence: None)
  Receive Date: 20141224
  Receipt Date: 20141224
  Transmission Date: 20150529
  Serious: Yes (Hospitalization)
  Sender: FDA-Public Use
  Company Number: NSR_01613_2014

PATIENT
  Age: 65 Year
  Sex: Female
  Weight: 99.79 kg

DRUGS (6)
  1. IRON [Concomitant]
     Active Substance: IRON
  2. TRAMADOL [Suspect]
     Active Substance: TRAMADOL
     Indication: PAIN
     Route: 048
     Dates: start: 20140211, end: 20140214
  3. ANTIHYPERTENSIVE [Concomitant]
     Active Substance: UNSPECIFIED INGREDIENT
  4. SINGULAIR [Concomitant]
     Active Substance: MONTELUKAST SODIUM
  5. ADVAIR HFA [Concomitant]
     Active Substance: FLUTICASONE PROPIONATE\SALMETEROL XINAFOATE
  6. COMIVENT [Concomitant]

REACTIONS (4)
  - Drug ineffective [None]
  - Hypersensitivity [None]
  - Coma [None]
  - Abasia [None]

NARRATIVE: CASE EVENT DATE: 20140222
